FAERS Safety Report 6535466-4 (Version None)
Quarter: 2010Q1

REPORT INFORMATION
  Report Type: 
  Country: None (occurrence: None)
  Receive Date: 20100105
  Receipt Date: 20091217
  Transmission Date: 20100710
  Serious: Yes (Other)
  Sender: FDA-Public Use
  Company Number: 003485

PATIENT
  Sex: Male
  Weight: 13.5 kg

DRUGS (6)
  1. CERTOLIZUMAB PEGOL [Suspect]
     Indication: CROHN'S DISEASE
     Dosage: SEE IMAGE
     Route: 058
     Dates: start: 20040909, end: 20041008
  2. CERTOLIZUMAB PEGOL [Suspect]
     Indication: CROHN'S DISEASE
     Dosage: SEE IMAGE
     Route: 058
     Dates: start: 20050530
  3. IMURAN [Concomitant]
  4. METROGEL [Concomitant]
  5. CEPHALEXIN [Concomitant]
  6. HYDROCODONE [Concomitant]

REACTIONS (4)
  - LIP AND/OR ORAL CAVITY CANCER [None]
  - PAIN [None]
  - ROSACEA [None]
  - SQUAMOUS CELL CARCINOMA [None]
